FAERS Safety Report 4882224-2 (Version None)
Quarter: 2006Q1

REPORT INFORMATION
  Report Type: 
  Country: None (occurrence: None)
  Receive Date: 20060117
  Receipt Date: 20051220
  Transmission Date: 20060701
  Serious: Yes (Hospitalization, Other)
  Sender: FDA-Public Use
  Company Number: US-MERCK-0512USA03330

PATIENT
  Age: 62 Year
  Sex: Male
  Weight: 112 kg

DRUGS (6)
  1. VIOXX [Suspect]
     Indication: NECK PAIN
     Route: 048
     Dates: start: 20020101, end: 20040101
  2. VIOXX [Suspect]
     Route: 048
     Dates: start: 20020101, end: 20040101
  3. VIOXX [Suspect]
     Indication: BACK PAIN
     Route: 048
     Dates: start: 20020101, end: 20040101
  4. VIOXX [Suspect]
     Route: 048
     Dates: start: 20020101, end: 20040101
  5. VICODIN [Concomitant]
     Route: 065
  6. MORPHINE [Concomitant]
     Route: 065

REACTIONS (35)
  - ABDOMINAL BRUIT [None]
  - ACUTE CORONARY SYNDROME [None]
  - ANGINA PECTORIS [None]
  - ANGINA UNSTABLE [None]
  - BLOOD PRESSURE INCREASED [None]
  - BRONCHIECTASIS [None]
  - BRONCHITIS [None]
  - BRONCHITIS CHRONIC [None]
  - CERVICAL MYELOPATHY [None]
  - CHEST PAIN [None]
  - CHRONIC OBSTRUCTIVE PULMONARY DISEASE [None]
  - CONDITION AGGRAVATED [None]
  - CORONARY ARTERY DISEASE [None]
  - CORONARY ARTERY OCCLUSION [None]
  - DIARRHOEA [None]
  - DIZZINESS [None]
  - DYSPNOEA [None]
  - GASTRITIS [None]
  - HAEMATEMESIS [None]
  - HAEMOPTYSIS [None]
  - HYPOXIA [None]
  - INTERVERTEBRAL DISC DISORDER [None]
  - LUMBAR RADICULOPATHY [None]
  - MYELOPATHY [None]
  - MYOCARDIAL INFARCTION [None]
  - MYOFASCITIS [None]
  - NAUSEA [None]
  - NECK INJURY [None]
  - PAPILLOEDEMA [None]
  - PNEUMONIA [None]
  - PRODUCTIVE COUGH [None]
  - PULMONARY FIBROSIS [None]
  - SACROILIITIS [None]
  - SYNCOPE [None]
  - WEIGHT DECREASED [None]
